FAERS Safety Report 11641606 (Version 3)
Quarter: 2015Q4

REPORT INFORMATION
  Report Type: Spontaneous
  Country: DE (occurrence: DE)
  Receive Date: 20151019
  Receipt Date: 20151113
  Transmission Date: 20160304
  Serious: Yes (Death, Hospitalization, Other)
  Sender: FDA-Public Use
  Company Number: DE-AMGEN-DEUSP2015107444

PATIENT
  Age: 83 Year
  Sex: Female

DRUGS (12)
  1. METHOTREXATE [Concomitant]
     Active Substance: METHOTREXATE
     Indication: INVASIVE DUCTAL BREAST CARCINOMA
  2. CYCLOPHOSPHAMIDE. [Concomitant]
     Active Substance: CYCLOPHOSPHAMIDE
     Indication: INVASIVE PAPILLARY BREAST CARCINOMA
  3. FLUOROURACIL. [Concomitant]
     Active Substance: FLUOROURACIL
     Indication: INVASIVE DUCTAL BREAST CARCINOMA
  4. CYCLOPHOSPHAMIDE. [Concomitant]
     Active Substance: CYCLOPHOSPHAMIDE
     Indication: INVASIVE DUCTAL BREAST CARCINOMA
  5. METHOTREXATE [Concomitant]
     Active Substance: METHOTREXATE
     Indication: TRIPLE NEGATIVE BREAST CANCER
     Dosage: 40 MG/M2 BODY SURFACE AREA, UNK
     Dates: start: 20150924
  6. FLUOROURACIL. [Concomitant]
     Active Substance: FLUOROURACIL
     Indication: INVASIVE PAPILLARY BREAST CARCINOMA
  7. NEULASTA [Suspect]
     Active Substance: PEGFILGRASTIM
     Indication: INVASIVE PAPILLARY BREAST CARCINOMA
  8. METHOTREXATE [Concomitant]
     Active Substance: METHOTREXATE
     Indication: INVASIVE PAPILLARY BREAST CARCINOMA
  9. FLUOROURACIL. [Concomitant]
     Active Substance: FLUOROURACIL
     Indication: TRIPLE NEGATIVE BREAST CANCER
     Dosage: 600 MG/M2 BODY SURFACE AREA DAY, UNK
     Dates: start: 20150924
  10. NEULASTA [Suspect]
     Active Substance: PEGFILGRASTIM
     Indication: TRIPLE NEGATIVE BREAST CANCER
     Dosage: 6 MG, UNK
     Route: 058
     Dates: start: 20150924
  11. NEULASTA [Suspect]
     Active Substance: PEGFILGRASTIM
     Indication: INVASIVE DUCTAL BREAST CARCINOMA
  12. CYCLOPHOSPHAMIDE. [Concomitant]
     Active Substance: CYCLOPHOSPHAMIDE
     Indication: TRIPLE NEGATIVE BREAST CANCER
     Dosage: 500 MG/M2 BODY SURFACE AREA, UNK
     Route: 065
     Dates: start: 20150924

REACTIONS (8)
  - Malaise [Unknown]
  - Nausea [Unknown]
  - Cardiac arrest [Unknown]
  - Neutropenic sepsis [Fatal]
  - General physical health deterioration [Unknown]
  - Bone pain [Unknown]
  - Septic shock [Fatal]
  - Fatigue [Unknown]

NARRATIVE: CASE EVENT DATE: 201510
